FAERS Safety Report 8387218-0 (Version None)
Quarter: 2012Q2

REPORT INFORMATION
  Report Type: 
  Country: None (occurrence: None)
  Receive Date: 20120525
  Receipt Date: 20120518
  Transmission Date: 20120825
  Serious: Yes (Hospitalization, Other)
  Sender: FDA-Public Use
  Company Number: US-MPIJNJ-2012-03170

PATIENT
  Sex: Female

DRUGS (3)
  1. VELCADE [Suspect]
     Dosage: 1.5 MG, CYCLIC
     Route: 058
     Dates: start: 20120504
  2. OXYCONTIN [Concomitant]
     Indication: BACK PAIN
     Dosage: 20 MG, PRN
  3. VELCADE [Suspect]
     Indication: MULTIPLE MYELOMA
     Dosage: 1.95 MG, CYCLIC
     Route: 058
     Dates: start: 20120203, end: 20120423

REACTIONS (3)
  - BACK PAIN [None]
  - DYSURIA [None]
  - LUMBAR SPINAL STENOSIS [None]
